FAERS Safety Report 4630610-8 (Version None)
Quarter: 2005Q2

REPORT INFORMATION
  Report Type: 
  Country: None (occurrence: None)
  Receive Date: 20050406
  Receipt Date: 20050329
  Transmission Date: 20051028
  Serious: Yes (Other)
  Sender: FDA-Public Use
  Company Number: 200510042BCC

PATIENT
  Age: 64 Year
  Sex: Female
  Weight: 58.0604 kg

DRUGS (8)
  1. ALEVE (CAPLET) [Suspect]
     Indication: HEADACHE
     Dosage: 200 MG, ONCE, ORAL
     Route: 048
     Dates: start: 20050101
  2. ALEVE (CAPLET) [Suspect]
     Indication: NASOPHARYNGITIS
     Dosage: 200 MG, ONCE, ORAL
     Route: 048
     Dates: start: 20050101
  3. ALEVE (CAPLET) [Suspect]
     Indication: PHARYNGOLARYNGEAL PAIN
     Dosage: 200 MG, ONCE, ORAL
     Route: 048
     Dates: start: 20050101
  4. DIGITEK [Concomitant]
  5. CALCIUM GLUCONATE [Concomitant]
  6. EVISTA [Concomitant]
  7. AXID [Concomitant]
  8. IBUPROFEN [Concomitant]

REACTIONS (2)
  - BLOOD PRESSURE INCREASED [None]
  - FLUSHING [None]
